FAERS Safety Report 25581855 (Version 2)
Quarter: 2025Q3

REPORT INFORMATION
  Report Type: Spontaneous
  Country: US (occurrence: US)
  Receive Date: 20250719
  Receipt Date: 20250822
  Transmission Date: 20251021
  Serious: Yes (Other)
  Sender: HETERO
  Company Number: US-HETERO-HET2025US03863

PATIENT
  Age: 83 Year
  Sex: Female
  Weight: 84.821 kg

DRUGS (1)
  1. DABIGATRAN ETEXILATE [Suspect]
     Active Substance: DABIGATRAN ETEXILATE
     Indication: Thrombosis
     Route: 048
     Dates: end: 20250708

REACTIONS (3)
  - Seizure [Unknown]
  - Tremor [Unknown]
  - Dyspnoea [Unknown]

NARRATIVE: CASE EVENT DATE: 20250707
